FAERS Safety Report 4322281-5 (Version None)
Quarter: 2004Q1

REPORT INFORMATION
  Report Type: 
  Country: None (occurrence: None)
  Receive Date: 20040319
  Receipt Date: 20040305
  Transmission Date: 20041129
  Serious: Yes (Other)
  Sender: FDA-Public Use
  Company Number: 2004015607

PATIENT
  Sex: Male

DRUGS (3)
  1. VIAGRA [Suspect]
     Indication: RADICAL PROSTATECTOMY
  2. AMIODARONE HCL [Suspect]
     Indication: ATRIAL FIBRILLATION
  3. PANTOPRAZOLE (PANTOPRAZOLE) [Concomitant]

REACTIONS (3)
  - ATRIAL FIBRILLATION [None]
  - DRUG INTERACTION [None]
  - FLUSHING [None]
